FAERS Safety Report 6833860-5 (Version None)
Quarter: 2010Q3

REPORT INFORMATION
  Report Type: 
  Country: None (occurrence: None)
  Receive Date: 20100712
  Receipt Date: 20070404
  Transmission Date: 20110219
  Serious: No
  Sender: FDA-Public Use
  Company Number: US-PFIZER INC-2007028144

PATIENT
  Sex: Female
  Weight: 78.93 kg

DRUGS (5)
  1. CHANTIX [Suspect]
     Indication: SMOKING CESSATION THERAPY
     Dates: start: 20070402
  2. NEXIUM [Concomitant]
     Indication: GASTRIC DISORDER
  3. ALEVE (CAPLET) [Concomitant]
  4. FLEXERIL [Concomitant]
     Indication: MUSCLE SPASMS
  5. TICLID [Concomitant]

REACTIONS (3)
  - DIARRHOEA [None]
  - FATIGUE [None]
  - PAIN [None]
